FAERS Safety Report 7707206-4 (Version None)
Quarter: 2011Q3

REPORT INFORMATION
  Report Type: 
  Country: None (occurrence: None)
  Receive Date: 20110824
  Receipt Date: 20110809
  Transmission Date: 20111222
  Serious: Yes (Hospitalization, Other)
  Sender: FDA-Public Use
  Company Number: PHHY2011BR73048

PATIENT
  Sex: Male

DRUGS (1)
  1. DIOVAN HCT [Suspect]
     Dosage: 320 MG OF VALS AND 25 MG OF HYD

REACTIONS (4)
  - EAR PAIN [None]
  - HERPES VIRUS INFECTION [None]
  - HEARING IMPAIRED [None]
  - NEURALGIA [None]
